FAERS Safety Report 20125469 (Version 2)
Quarter: 2021Q4

REPORT INFORMATION
  Report Type: Report from Study
  Country: BR (occurrence: BR)
  Receive Date: 20211129
  Receipt Date: 20211202
  Transmission Date: 20220303
  Serious: Yes (Other)
  Sender: FDA-Public Use
  Company Number: BR-ABBVIE-21K-020-3927253-00

PATIENT
  Age: 60 Year
  Sex: Female
  Weight: 78 kg

DRUGS (8)
  1. SKYRIZI [Suspect]
     Active Substance: RISANKIZUMAB-RZAA
     Indication: Psoriasis
     Dosage: LOADING DOSE - WEEK 00
     Route: 058
     Dates: start: 20201230, end: 20201230
  2. SKYRIZI [Suspect]
     Active Substance: RISANKIZUMAB-RZAA
     Dosage: LOADING DOSE - WEEK 02
     Route: 058
     Dates: start: 2021, end: 2021
  3. SKYRIZI [Suspect]
     Active Substance: RISANKIZUMAB-RZAA
     Route: 058
     Dates: start: 2021, end: 2021
  4. SKYRIZI [Suspect]
     Active Substance: RISANKIZUMAB-RZAA
     Route: 058
     Dates: start: 20210615
  5. SKYRIZI [Suspect]
     Active Substance: RISANKIZUMAB-RZAA
     Route: 058
     Dates: start: 20210915
  6. COVID-19 VACCINE NOS [Suspect]
     Active Substance: COVID-19 VACCINE NOS
     Indication: COVID-19 immunisation
     Route: 030
     Dates: start: 20210508, end: 20210508
  7. COVID-19 VACCINE NOS [Suspect]
     Active Substance: COVID-19 VACCINE NOS
     Route: 030
     Dates: start: 20210804, end: 20210804
  8. DESLORATADINE [Concomitant]
     Active Substance: DESLORATADINE
     Indication: Hypersensitivity
     Route: 048
     Dates: start: 202104, end: 202104

REACTIONS (22)
  - Leukaemia [Not Recovered/Not Resolved]
  - Ear pruritus [Not Recovered/Not Resolved]
  - Blister [Unknown]
  - Insomnia [Unknown]
  - Helminthic infection [Unknown]
  - Eye pruritus [Not Recovered/Not Resolved]
  - Oral pruritus [Not Recovered/Not Resolved]
  - Nasal pruritus [Not Recovered/Not Resolved]
  - Agitation [Recovering/Resolving]
  - Nervousness [Recovering/Resolving]
  - Abdominal pain upper [Recovered/Resolved]
  - Skin discolouration [Not Recovered/Not Resolved]
  - Anxiety [Recovering/Resolving]
  - Stress [Unknown]
  - Vitamin D decreased [Not Recovered/Not Resolved]
  - Nodule [Not Recovered/Not Resolved]
  - Irritability [Unknown]
  - Intentional product misuse [Recovered/Resolved]
  - Rhinitis [Recovered/Resolved]
  - Headache [Recovered/Resolved]
  - Psoriasis [Not Recovered/Not Resolved]
  - Malaise [Not Recovered/Not Resolved]

NARRATIVE: CASE EVENT DATE: 20201201
